FAERS Safety Report 11647778 (Version 1)
Quarter: 2015Q4

REPORT INFORMATION
  Report Type: Spontaneous
  Country: US (occurrence: None)
  Receive Date: 20151020
  Receipt Date: 20151020
  Transmission Date: 20160304
  Serious: Yes (Hospitalization)
  Sender: FDA-Public Use
  Company Number: None

PATIENT
  Age: 47 Year
  Sex: Male
  Weight: 86.18 kg

DRUGS (5)
  1. NAPROXEN. [Suspect]
     Active Substance: NAPROXEN
     Indication: MUSCULOSKELETAL PAIN
     Route: 048
     Dates: start: 20151009, end: 20151018
  2. MV [Concomitant]
  3. LUTEIN [Concomitant]
     Active Substance: LUTEIN
  4. HCTZ [Concomitant]
     Active Substance: HYDROCHLOROTHIAZIDE
  5. LISINOPRIL. [Concomitant]
     Active Substance: LISINOPRIL

REACTIONS (6)
  - Dyspepsia [None]
  - Duodenal ulcer [None]
  - Haematochezia [None]
  - Gastritis [None]
  - Nausea [None]
  - Faeces discoloured [None]

NARRATIVE: CASE EVENT DATE: 20151019
